FAERS Safety Report 25635028 (Version 1)
Quarter: 2025Q3

REPORT INFORMATION
  Report Type: Spontaneous
  Country: US (occurrence: US)
  Receive Date: 20250801
  Receipt Date: 20250801
  Transmission Date: 20251020
  Serious: Yes (Death, Other)
  Sender: NOVARTIS
  Company Number: US-002147023-NVSC2025US121699

PATIENT
  Age: 74 Year
  Sex: Male

DRUGS (6)
  1. IMATINIB [Suspect]
     Active Substance: IMATINIB
     Indication: Chronic myeloid leukaemia
     Route: 065
  2. ASCIMINIB [Interacting]
     Active Substance: ASCIMINIB
     Indication: B-cell type acute leukaemia
     Route: 065
  3. ASCIMINIB [Interacting]
     Active Substance: ASCIMINIB
     Indication: Chronic myeloid leukaemia transformation
  4. DASATINIB [Interacting]
     Active Substance: DASATINIB
     Indication: Chronic myeloid leukaemia
     Route: 065
  5. PONATINIB [Interacting]
     Active Substance: PONATINIB
     Indication: B-cell type acute leukaemia
     Route: 065
  6. PONATINIB [Interacting]
     Active Substance: PONATINIB
     Indication: Chronic myeloid leukaemia transformation

REACTIONS (3)
  - Drug resistance [Fatal]
  - Gastrointestinal toxicity [Unknown]
  - Chronic myeloid leukaemia transformation [Unknown]
